FAERS Safety Report 9588880 (Version 1)
Quarter: 2013Q4

REPORT INFORMATION
  Report Type: Spontaneous
  Country: US (occurrence: US)
  Receive Date: 20131003
  Receipt Date: 20131003
  Transmission Date: 20140711
  Serious: No
  Sender: FDA-Public Use
  Company Number: US-AMGEN-USASP2012066800

PATIENT
  Age: 64 Year
  Sex: Male
  Weight: 97.51 kg

DRUGS (6)
  1. ENBREL [Suspect]
     Indication: PSORIATIC ARTHROPATHY
     Dosage: 50 MG, QWK
     Route: 058
  2. PREVACID [Concomitant]
     Dosage: 15 MG, UNK
     Route: 048
  3. HUMIRA [Concomitant]
     Indication: PSORIASIS
     Dosage: UNK
     Route: 058
  4. TRAMADOL HCL [Concomitant]
     Dosage: 50 MG, UNK
     Route: 048
  5. GLUCOSAMIN CHONDROITIN             /01430901/ [Concomitant]
     Dosage: UNK
     Route: 048
  6. ALLEREST                           /00419602/ [Concomitant]
     Dosage: 30-325 MG
     Route: 048

REACTIONS (2)
  - Drug ineffective [Unknown]
  - Injection site pain [Unknown]
